FAERS Safety Report 4506686-5 (Version None)
Quarter: 2004Q4

REPORT INFORMATION
  Report Type: 
  Country: None (occurrence: None)
  Receive Date: 20041122
  Receipt Date: 20041110
  Transmission Date: 20050328
  Serious: Yes (Life-Threatening, Disabling)
  Sender: FDA-Public Use
  Company Number: GB-MERCK-0411GBR00110

PATIENT
  Age: 83 Year
  Sex: Male

DRUGS (5)
  1. VIOXX [Suspect]
     Indication: OSTEOARTHRITIS
     Route: 048
     Dates: start: 20030312, end: 20041003
  2. DONEPEZIL HYDROCHLORIDE [Concomitant]
     Indication: DEMENTIA
     Route: 048
     Dates: start: 20030107
  3. LEVOTHYROXINE SODIUM [Concomitant]
     Indication: HYPOTHYROIDISM
     Route: 048
     Dates: start: 20040211
  4. ACETAMINOPHEN [Concomitant]
     Route: 048
     Dates: start: 20030312
  5. IBUPROFEN [Concomitant]
     Indication: PAIN
     Route: 061
     Dates: start: 20021219

REACTIONS (1)
  - CEREBROVASCULAR ACCIDENT [None]
